FAERS Safety Report 12839351 (Version 3)
Quarter: 2016Q4

REPORT INFORMATION
  Report Type: Spontaneous
  Country: US (occurrence: US)
  Receive Date: 20161012
  Receipt Date: 20161024
  Transmission Date: 20170207
  Serious: No
  Sender: FDA-Public Use
  Company Number: US-PFIZER INC-2016473924

PATIENT
  Age: 22 Year
  Sex: Male
  Weight: 79 kg

DRUGS (2)
  1. NARDIL [Suspect]
     Active Substance: PHENELZINE SULFATE
     Indication: SOCIAL ANXIETY DISORDER
     Dosage: 15 MG, 1X/DAY (IN THE MORNING FOR ONE WEEK)
     Route: 048
     Dates: start: 201610
  2. NARDIL [Suspect]
     Active Substance: PHENELZINE SULFATE
     Dosage: 15 MG, 2X/DAY

REACTIONS (4)
  - Anxiety [Unknown]
  - Vision blurred [Not Recovered/Not Resolved]
  - Heart rate increased [Unknown]
  - Blood pressure increased [Unknown]

NARRATIVE: CASE EVENT DATE: 201610
